FAERS Safety Report 26011678 (Version 1)
Quarter: 2025Q4

REPORT INFORMATION
  Report Type: Spontaneous
  Country: US (occurrence: US)
  Receive Date: 20251107
  Receipt Date: 20251107
  Transmission Date: 20260118
  Serious: Yes (Other)
  Sender: SANOFI AVENTIS
  Company Number: US-SA-2025SA327411

PATIENT
  Age: 51 Year
  Sex: Female
  Weight: 68.03 kg

DRUGS (1)
  1. DUPIXENT [Suspect]
     Active Substance: DUPILUMAB
     Indication: Asthma
     Dosage: UNK

REACTIONS (7)
  - Loss of consciousness [Unknown]
  - Weight increased [Unknown]
  - Hernia [Unknown]
  - Fall [Unknown]
  - Internal injury [Unknown]
  - Gait disturbance [Unknown]
  - Colostomy [Unknown]

NARRATIVE: CASE EVENT DATE: 20220101
